FAERS Safety Report 6686533-6 (Version None)
Quarter: 2010Q2

REPORT INFORMATION
  Report Type: 
  Country: None (occurrence: None)
  Receive Date: 20100415
  Receipt Date: 20100401
  Transmission Date: 20101027
  Serious: Yes (Life-Threatening, Hospitalization)
  Sender: FDA-Public Use
  Company Number: 2010-0925

PATIENT
  Age: 13 Year
  Sex: Male

DRUGS (1)
  1. INCRELEX [Suspect]
     Indication: BODY HEIGHT BELOW NORMAL
     Dosage: 100 UNITS (100 UNITS,1 IN 1 D), SUBCUTANEOUS
     Route: 058
     Dates: start: 20100129, end: 20100301

REACTIONS (1)
  - INTRACRANIAL PRESSURE INCREASED [None]
